FAERS Safety Report 7164371-8 (Version None)
Quarter: 2010Q4

REPORT INFORMATION
  Report Type: 
  Country: None (occurrence: None)
  Receive Date: 20101215
  Receipt Date: 20101207
  Transmission Date: 20110411
  Serious: Yes (Death)
  Sender: FDA-Public Use
  Company Number: US-BAXTER-2010BH029526

PATIENT
  Age: 72 Year
  Sex: Female

DRUGS (1)
  1. DIANEAL [Suspect]
     Indication: PERITONEAL DIALYSIS
     Route: 033
     Dates: end: 20101203

REACTIONS (4)
  - ABDOMINAL STRANGULATED HERNIA [None]
  - INTESTINAL PERFORATION [None]
  - SEPSIS [None]
  - SEPTIC SHOCK [None]
